FAERS Safety Report 24657340 (Version 1)
Quarter: 2024Q4

REPORT INFORMATION
  Report Type: Spontaneous
  Country: US (occurrence: US)
  Receive Date: 20241125
  Receipt Date: 20241125
  Transmission Date: 20250114
  Serious: No
  Sender: TEVA
  Company Number: US-TEVA-VS-3263182

PATIENT
  Age: 66 Year
  Sex: Female

DRUGS (2)
  1. AMLODIPINE [Suspect]
     Active Substance: AMLODIPINE BESYLATE
     Indication: Product used for unknown indication
     Route: 065
  2. TYMLOS [Suspect]
     Active Substance: ABALOPARATIDE
     Indication: Osteoporosis
     Route: 058

REACTIONS (3)
  - Headache [Unknown]
  - Peripheral swelling [Unknown]
  - Dizziness [Unknown]
